FAERS Safety Report 13904602 (Version 1)
Quarter: 2017Q3

REPORT INFORMATION
  Report Type: Spontaneous
  Country: JP (occurrence: JP)
  Receive Date: 20170825
  Receipt Date: 20170825
  Transmission Date: 20171127
  Serious: Yes (Hospitalization)
  Sender: FDA-Public Use
  Company Number: JP-B.I. PHARMACEUTICALS,INC./RIDGEFIELD-2017-NB-004841

PATIENT

DRUGS (3)
  1. BI-SIFROL [Suspect]
     Active Substance: PRAMIPEXOLE
     Indication: RESTLESS LEGS SYNDROME
     Route: 065
     Dates: start: 201506
  2. BI-SIFROL [Suspect]
     Active Substance: PRAMIPEXOLE
     Route: 065
     Dates: start: 20170114
  3. BI-SIFROL [Suspect]
     Active Substance: PRAMIPEXOLE
     Route: 065
     Dates: start: 201507

REACTIONS (2)
  - Hallucination, auditory [Unknown]
  - Persecutory delusion [Unknown]

NARRATIVE: CASE EVENT DATE: 201707
